FAERS Safety Report 23841928 (Version 2)
Quarter: 2024Q2

REPORT INFORMATION
  Report Type: Spontaneous
  Country: US (occurrence: US)
  Receive Date: 20240510
  Receipt Date: 20240619
  Transmission Date: 20240716
  Serious: Yes (Death, Hospitalization)
  Sender: FDA-Public Use
  Company Number: US-JNJFOC-20240508141

PATIENT
  Age: 65 Year
  Sex: Male
  Weight: 101.5 kg

DRUGS (5)
  1. TECVAYLI [Suspect]
     Active Substance: TECLISTAMAB-CQYV
     Indication: Plasma cell myeloma refractory
     Dosage: DAY 1
     Route: 058
     Dates: start: 20240408
  2. TECVAYLI [Suspect]
     Active Substance: TECLISTAMAB-CQYV
     Dosage: FIRST TREATMENT DOSE IN THE MORNING
     Route: 065
  3. TECVAYLI [Suspect]
     Active Substance: TECLISTAMAB-CQYV
     Dosage: DAY 3
     Route: 058
     Dates: start: 20240410
  4. TECVAYLI [Suspect]
     Active Substance: TECLISTAMAB-CQYV
     Dosage: THIRD DOSE
     Route: 058
     Dates: start: 20240415
  5. TECVAYLI [Suspect]
     Active Substance: TECLISTAMAB-CQYV
     Dosage: FOURTH DOSE?LAST DOSE WAS GIVEN ON 22-APR-2024
     Route: 058
     Dates: start: 20240422

REACTIONS (18)
  - Acidosis [Fatal]
  - Acute kidney injury [Unknown]
  - Sepsis [Unknown]
  - Immune effector cell-associated neurotoxicity syndrome [Recovered/Resolved]
  - Cytokine release syndrome [Recovered/Resolved]
  - Thrombocytopenia [Unknown]
  - Hypertransaminasaemia [Unknown]
  - Pneumonia [Recovered/Resolved]
  - Neuropathy peripheral [Unknown]
  - Blood bilirubin increased [Unknown]
  - Haemorrhage [Unknown]
  - Haemophagocytic lymphohistiocytosis [Unknown]
  - Cytomegalovirus infection reactivation [Unknown]
  - Cardiac failure congestive [Unknown]
  - Delirium [Unknown]
  - Agitation [Unknown]
  - Vocal cord dysfunction [Unknown]
  - Blood fibrinogen decreased [Unknown]

NARRATIVE: CASE EVENT DATE: 20240101
